FAERS Safety Report 7954422 (Version 6)
Quarter: 2013Q1

REPORT INFORMATION
  Report Type: Spontaneous
  Country: FR (occurrence: FR)
  Receive Date: 20110520
  Receipt Date: 20130131
  Transmission Date: 20140127
  Serious: Yes (Life-Threatening, Hospitalization, Other)
  Sender: FDA-Public Use
  Company Number: FR-UCBSA-024277

PATIENT
  Age: 22 Year
  Sex: Female

DRUGS (33)
  1. KEPPRA [Suspect]
     Indication: EPILEPSY
     Route: 042
     Dates: start: 20100902, end: 20101003
  2. LOXAPAC [Suspect]
     Indication: PSYCHOTIC DISORDER
     Route: 042
     Dates: start: 20100913, end: 20101003
  3. LOXAPAC [Suspect]
     Indication: AGITATION
     Route: 042
     Dates: start: 20100913, end: 20101003
  4. SULFADIAZINE [Suspect]
     Indication: INFECTION PROPHYLAXIS
     Route: 061
     Dates: start: 20100904, end: 20101003
  5. FOLIC ACID [Suspect]
     Dosage: DOSE: UNKNOWN
     Dates: start: 20100918, end: 20100929
  6. TARDYFERON [Suspect]
     Dates: start: 20100918, end: 20100929
  7. GENTALLINE (GENTAMICINE) [Concomitant]
     Indication: PNEUMONIA
     Route: 042
     Dates: start: 20100914, end: 20100917
  8. EFFEXOR [Concomitant]
     Indication: DEPRESSION
     Dosage: ORAL/IV
     Dates: start: 2008
  9. EFFEXOR [Concomitant]
     Indication: DEPRESSION
     Dates: start: 20100903, end: 20101001
  10. MORPHINE [Concomitant]
     Dates: start: 20100918, end: 20100922
  11. LEXOMIL [Concomitant]
     Indication: AGITATION
     Dates: start: 20100929
  12. ACTRAPID [Concomitant]
     Dates: start: 20100903, end: 20100919
  13. CELOCURINE [Concomitant]
     Dates: start: 20100902, end: 20100918
  14. DIPRIVAN [Concomitant]
     Dates: start: 20100902, end: 20100911
  15. BRICANYL [Concomitant]
     Dates: start: 20100913, end: 20100914
  16. ERYTHROMYCINE [Concomitant]
     Dates: start: 20100907, end: 20100911
  17. DAFFALGAN [Concomitant]
     Dates: start: 20100916, end: 20101002
  18. ETOMIDATE [Concomitant]
     Dates: start: 20100902, end: 20100918
  19. GENTAMICINE [Concomitant]
     Dates: start: 20100902, end: 20100918
  20. HYPNOVEL [Concomitant]
     Dates: start: 20100910, end: 20100913
  21. FOLDINE [Concomitant]
     Dates: start: 20100918, end: 20100929
  22. LASILEX [Concomitant]
     Dates: start: 20100905, end: 20100915
  23. INEXIUM [Concomitant]
     Dates: start: 20100907, end: 20100910
  24. ISUPREL [Concomitant]
     Dates: start: 20100902, end: 20100903
  25. LEVOTHYROX [Concomitant]
     Dates: start: 20091107, end: 20100915
  26. RIVOTRIL [Concomitant]
     Dates: start: 20100902, end: 20100903
  27. SECTRAL [Concomitant]
     Dates: start: 20100915, end: 20101003
  28. PARACETAMOL [Concomitant]
     Dates: start: 20100903, end: 20100909
  29. ORBENINE [Concomitant]
     Dates: start: 20100902, end: 20100918
  30. SUFENTA [Concomitant]
     Dates: start: 20100902, end: 20100918
  31. SOLUMEDROL [Concomitant]
     Dates: start: 20100910, end: 20100913
  32. NORCURON [Concomitant]
     Dates: start: 20100910, end: 20100913
  33. LOVENOX [Concomitant]
     Dates: start: 20100905, end: 20101002

REACTIONS (5)
  - Toxic epidermal necrolysis [Recovered/Resolved with Sequelae]
  - Pneumonia staphylococcal [Unknown]
  - Septic shock [Recovered/Resolved]
  - Anxiety [Unknown]
  - Depression [Unknown]
